FAERS Safety Report 25094974 (Version 1)
Quarter: 2025Q1

REPORT INFORMATION
  Report Type: Spontaneous
  Country: US (occurrence: None)
  Receive Date: 20250319
  Receipt Date: 20250319
  Transmission Date: 20250409
  Serious: No
  Sender: FDA-CTU
  Company Number: None

PATIENT
  Age: 50 Year
  Sex: Male
  Weight: 99 kg

DRUGS (2)
  1. BUPROPION HYDROCHLORIDE [Suspect]
     Active Substance: BUPROPION HYDROCHLORIDE
     Indication: Drug therapy
     Route: 048
     Dates: start: 20250312, end: 20250315
  2. SYNTHROID [Concomitant]
     Active Substance: LEVOTHYROXINE SODIUM

REACTIONS (6)
  - Mania [None]
  - Obsessive-compulsive disorder [None]
  - Binge eating [None]
  - Gambling [None]
  - Tobacco user [None]
  - Mental disorder [None]

NARRATIVE: CASE EVENT DATE: 20250315
